FAERS Safety Report 6751832-6 (Version None)
Quarter: 2010Q2

REPORT INFORMATION
  Report Type: 
  Country: None (occurrence: None)
  Receive Date: 20100602
  Receipt Date: 20100602
  Transmission Date: 20101027
  Serious: Yes (Other)
  Sender: FDA-Public Use
  Company Number: None

PATIENT
  Sex: Female
  Weight: 12.7007 kg

DRUGS (1)
  1. CHILDREN'S MOTRIN [Suspect]
     Indication: TEETHING
     Dosage: 1 TEASPOON EVERY 6 HRS. EVERY 6 HRS APPROX.
     Dates: start: 20100508, end: 20100511

REACTIONS (4)
  - GAIT DISTURBANCE [None]
  - HYPOPHAGIA [None]
  - LETHARGY [None]
  - SOMNOLENCE [None]
